FAERS Safety Report 8229079-6 (Version None)
Quarter: 2012Q1

REPORT INFORMATION
  Report Type: 
  Country: None (occurrence: None)
  Receive Date: 20120322
  Receipt Date: 20120322
  Transmission Date: 20120608
  Serious: Yes (Other)
  Sender: FDA-Public Use
  Company Number: US-PFIZER INC-2012071865

PATIENT
  Sex: Male

DRUGS (2)
  1. OXYCONTIN [Suspect]
     Dosage: 80 MG, 3X/DAY
     Route: 048
     Dates: end: 20120201
  2. MORPHINE SULFATE [Suspect]

REACTIONS (2)
  - DRUG ABUSE [None]
  - DRUG INEFFECTIVE [None]
